FAERS Safety Report 7626598-8 (Version None)
Quarter: 2011Q3

REPORT INFORMATION
  Report Type: 
  Country: None (occurrence: None)
  Receive Date: 20110721
  Receipt Date: 20110712
  Transmission Date: 20111222
  Serious: Yes (Other)
  Sender: FDA-Public Use
  Company Number: IN-GLAXOSMITHKLINE-B0734130A

PATIENT
  Age: 22 Year
  Sex: Male

DRUGS (1)
  1. BUPROPION HCL [Suspect]
     Indication: BIPOLAR II DISORDER
     Dosage: 150MG PER DAY
     Route: 065

REACTIONS (5)
  - PSYCHOMOTOR HYPERACTIVITY [None]
  - HYPOMANIA [None]
  - LOGORRHOEA [None]
  - INSOMNIA [None]
  - EUPHORIC MOOD [None]
